FAERS Safety Report 11967005 (Version 2)
Quarter: 2016Q1

REPORT INFORMATION
  Report Type: Spontaneous
  Country: US (occurrence: US)
  Receive Date: 20160127
  Receipt Date: 20160217
  Transmission Date: 20160526
  Serious: No
  Sender: FDA-Public Use
  Company Number: US-TAKEDA-2016TUS001349

PATIENT
  Age: 68 Year
  Sex: Female

DRUGS (8)
  1. VALIUM [Concomitant]
     Active Substance: DIAZEPAM
     Indication: SPASMODIC DYSPHONIA
     Dosage: UNK
     Route: 048
  2. PEPTID [Concomitant]
     Dosage: 20 MG, QD
     Route: 065
     Dates: start: 20150713
  3. DEXILANT [Suspect]
     Active Substance: DEXLANSOPRAZOLE
     Indication: GASTROOESOPHAGEAL REFLUX DISEASE
     Dosage: 60 MG, QD
     Route: 048
  4. DEXILANT [Suspect]
     Active Substance: DEXLANSOPRAZOLE
     Indication: BARRETT^S OESOPHAGUS
  5. PEPTID [Concomitant]
     Dosage: 40 MG, QD
     Route: 065
     Dates: start: 20150713
  6. ZANTAC [Concomitant]
     Active Substance: RANITIDINE HYDROCHLORIDE
     Dosage: UNK
  7. SYNTHROID [Concomitant]
     Active Substance: LEVOTHYROXINE SODIUM
     Indication: HYPOTHYROIDISM
     Dosage: 50 ?G, QD
     Route: 048
     Dates: start: 2011
  8. PEPTID [Concomitant]
     Dosage: 40 MG, BID
     Dates: start: 20151215

REACTIONS (4)
  - Gastric polyps [Not Recovered/Not Resolved]
  - Body height decreased [Unknown]
  - Osteopenia [Not Recovered/Not Resolved]
  - Osteoporosis [Not Recovered/Not Resolved]

NARRATIVE: CASE EVENT DATE: 1998
